FAERS Safety Report 23239307 (Version 3)
Quarter: 2024Q3

REPORT INFORMATION
  Report Type: Report from Study
  Country: CA (occurrence: CA)
  Receive Date: 20231129
  Receipt Date: 20240715
  Transmission Date: 20241017
  Serious: Yes (Hospitalization, Other)
  Sender: ABBVIE
  Company Number: CA-ABBVIE-5510227

PATIENT
  Sex: Female

DRUGS (3)
  1. SKYRIZI [Suspect]
     Active Substance: RISANKIZUMAB-RZAA
     Indication: Crohn^s disease
     Route: 058
     Dates: start: 20230724
  2. SKYRIZI [Suspect]
     Active Substance: RISANKIZUMAB-RZAA
     Route: 058
  3. SKYRIZI [Suspect]
     Active Substance: RISANKIZUMAB-RZAA
     Route: 058

REACTIONS (3)
  - Cerebrovascular accident [Recovering/Resolving]
  - Confusional state [Unknown]
  - Inappropriate schedule of product administration [Unknown]

NARRATIVE: CASE EVENT DATE: 20230101
